FAERS Safety Report 6328873-6 (Version None)
Quarter: 2009Q3

REPORT INFORMATION
  Report Type: 
  Country: None (occurrence: None)
  Receive Date: 20090824
  Receipt Date: 20090824
  Transmission Date: 20100115
  Serious: No
  Sender: FDA-Public Use
  Company Number: None

PATIENT
  Age: 56 Year
  Sex: Male
  Weight: 95.2554 kg

DRUGS (1)
  1. INTENSE SINUS RELIEF ZICAM NASAL SPRAY INTENSE ZICAM [Suspect]
     Indication: SINUS CONGESTION
     Dosage: 1 SPRAY ONCE A DAY
     Dates: start: 20080208, end: 20080210

REACTIONS (2)
  - AGEUSIA [None]
  - ANOSMIA [None]
